FAERS Safety Report 16103312 (Version 2)
Quarter: 2020Q2

REPORT INFORMATION
  Report Type: Report from Study
  Country: None (occurrence: IL)
  Receive Date: 20190322
  Receipt Date: 20200421
  Transmission Date: 20200713
  Serious: Yes (Hospitalization, Other)
  Sender: FDA-Public Use
  Company Number: IL-ABBVIE-18K-082-2461032-00

PATIENT
  Sex: Male
  Weight: 55 kg

DRUGS (3)
  1. HUMIRA [Suspect]
     Active Substance: ADALIMUMAB
     Route: 058
     Dates: start: 201807, end: 201901
  2. HUMIRA [Suspect]
     Active Substance: ADALIMUMAB
     Indication: CROHN^S DISEASE
     Dosage: CHANGED FREQUENCY 6 MONTHS AGO
     Route: 058
     Dates: start: 20180108, end: 201807
  3. HUMIRA [Suspect]
     Active Substance: ADALIMUMAB
     Route: 058
     Dates: start: 201901, end: 2020

REACTIONS (8)
  - Fistula [Not Recovered/Not Resolved]
  - Antibody test negative [Unknown]
  - Intestinal stenosis [Not Recovered/Not Resolved]
  - Drug specific antibody present [Unknown]
  - Intestinal resection [Unknown]
  - Injection site pain [Recovering/Resolving]
  - Intestinal fistula [Unknown]
  - Drug level decreased [Unknown]

NARRATIVE: CASE EVENT DATE: 2018
